FAERS Safety Report 9288616 (Version 1)
Quarter: 2012Q4

REPORT INFORMATION
  Report Type: Spontaneous
  Country: US (occurrence: None)
  Receive Date: 20120918
  Receipt Date: 20120918
  Transmission Date: 20130627
  Serious: Yes (Other)
  Sender: FDA-Public Use
  Company Number: USA/USA/12/0025694

PATIENT
  Sex: Female

DRUGS (15)
  1. CLOPIDOGREL BISULFATE [Suspect]
     Indication: PERIPHERAL ARTERIAL  DISEASE
  2. NORCO (VICODIN) [Concomitant]
  3. METFORMIN HCL (METFORMIN HYDROCHLORIDE) [Concomitant]
  4. GLYBURIDE (GLIBENCLAMIDE) [Concomitant]
  5. NEXIUM (ESOMEPRAZOLE MAGNESIUM) [Concomitant]
  6. RAMIPRIL (RAMIPRIL) [Concomitant]
  7. ATENOLOL (ATENOLOL) [Concomitant]
  8. PLAVIX (CLOPIDOGREL BISULFATE) [Concomitant]
  9. SYNTHROID (LEVOTHYROXINE SODIUM) [Concomitant]
  10. ALPRAZOLAM (ALPRAZOLAM) [Concomitant]
  11. GABAPENTIN (GABAPENTIN) [Concomitant]
  12. FUROSEMIDE (FUROSEMIDE) [Concomitant]
  13. KCL (POTASSIUM CHLORIDE) [Concomitant]
  14. CILOSTAZOLE (CILOSTAZOL) [Concomitant]
  15. ZANAFLEX (TIZANIDINE HYDROCHLORIDE) [Concomitant]

REACTIONS (5)
  - Optic ischaemic neuropathy [None]
  - Retinal artery thrombosis [None]
  - Blindness [None]
  - Product substitution issue [None]
  - Product quality issue [None]
